FAERS Safety Report 7104660-6 (Version None)
Quarter: 2010Q4

REPORT INFORMATION
  Report Type: 
  Country: None (occurrence: None)
  Receive Date: 20101116
  Receipt Date: 20101103
  Transmission Date: 20110411
  Serious: No
  Sender: FDA-Public Use
  Company Number: US-JNJFOC-20101102580

PATIENT
  Sex: Male
  Weight: 108.86 kg

DRUGS (6)
  1. DURAGESIC-100 [Suspect]
     Indication: INTERVERTEBRAL DISC DEGENERATION
     Route: 062
  2. DURAGESIC-100 [Suspect]
     Route: 062
  3. DURAGESIC-100 [Suspect]
     Route: 062
  4. VALIUM [Concomitant]
     Indication: HYPERTENSION
     Route: 048
  5. METHADONE HCL [Concomitant]
     Indication: PAIN
     Route: 048
  6. METHADONE HCL [Concomitant]
     Dosage: 1 PER AM
     Route: 048

REACTIONS (3)
  - DRUG INEFFECTIVE [None]
  - PRODUCT ADHESION ISSUE [None]
  - WRONG TECHNIQUE IN DRUG USAGE PROCESS [None]
